FAERS Safety Report 7232682-3 (Version None)
Quarter: 2011Q1

REPORT INFORMATION
  Report Type: 
  Country: None (occurrence: None)
  Receive Date: 20110106
  Receipt Date: 20101230
  Transmission Date: 20110831
  Serious: Yes (Disabling, Other)
  Sender: FDA-Public Use
  Company Number: TRP_07485_2010

PATIENT
  Sex: Female

DRUGS (2)
  1. INFERGEN [Suspect]
     Indication: PRODUCT USED FOR UNKNOWN INDICATION
     Dosage: (1 DF 1X/WEEK) (1 DF QD)
  2. INFERGEN [Suspect]
     Indication: PRODUCT USED FOR UNKNOWN INDICATION
     Dosage: (1 DF 1X/WEEK) (1 DF QD)

REACTIONS (2)
  - FEELING ABNORMAL [None]
  - BEDRIDDEN [None]
